FAERS Safety Report 9165363 (Version 1)
Quarter: 2013Q1

REPORT INFORMATION
  Report Type: Report from Study
  Country: PT (occurrence: PT)
  Receive Date: 20130315
  Receipt Date: 20130315
  Transmission Date: 20140127
  Serious: Yes (Death, Other)
  Sender: FDA-Public Use
  Company Number: PT-BAYER-2013-030136

PATIENT
  Sex: 0

DRUGS (1)
  1. BETAFERON [Suspect]
     Dosage: UNK
     Route: 064
     Dates: start: 20100907, end: 20130205

REACTIONS (1)
  - Foetal malformation [Fatal]
